FAERS Safety Report 6641603-3 (Version None)
Quarter: 2010Q1

REPORT INFORMATION
  Report Type: 
  Country: None (occurrence: None)
  Receive Date: 20100317
  Receipt Date: 20100317
  Transmission Date: 20100710
  Serious: No
  Sender: FDA-Public Use
  Company Number: None

PATIENT
  Age: 31 Year
  Sex: Male
  Weight: 125 kg

DRUGS (1)
  1. MILNACIPRAN [Suspect]
     Indication: FIBROMYALGIA
     Dosage: 50 MG BID PO
     Route: 048
     Dates: start: 20091129, end: 20091215

REACTIONS (3)
  - ABDOMINAL PAIN [None]
  - NAUSEA [None]
  - VOMITING [None]
